FAERS Safety Report 10225927 (Version 1)
Quarter: 2014Q2

REPORT INFORMATION
  Report Type: Spontaneous
  Country: US (occurrence: US)
  Receive Date: 20140609
  Receipt Date: 20140609
  Transmission Date: 20141212
  Serious: No
  Sender: FDA-Public Use
  Company Number: US-ASTELLAS-2013US004620

PATIENT
  Sex: Male

DRUGS (1)
  1. PROGRAF [Suspect]
     Indication: RENAL TRANSPLANT
     Dosage: 3 MG, UID/QD  (2 MG IN MORNING AND 1 MG IN EVENING)
     Route: 048
     Dates: start: 20060609

REACTIONS (2)
  - Fatigue [Unknown]
  - Asthenia [Unknown]
